FAERS Safety Report 12704669 (Version 13)
Quarter: 2018Q2

REPORT INFORMATION
  Report Type: Report from Study
  Country: CA (occurrence: CA)
  Receive Date: 20160831
  Receipt Date: 20180618
  Transmission Date: 20180711
  Serious: Yes (Hospitalization, Other)
  Sender: FDA-Public Use
  Company Number: CA-TAKEDA-2016TUS015019

PATIENT
  Age: 37 Year
  Sex: Male

DRUGS (5)
  1. GRAVOL [Concomitant]
     Active Substance: DIMENHYDRINATE
     Dosage: UNK
  2. PERCOCET [Concomitant]
     Active Substance: ACETAMINOPHEN\OXYCODONE HYDROCHLORIDE
     Dosage: UNK
  3. CIPRALEX [Concomitant]
     Active Substance: ESCITALOPRAM OXALATE
     Dosage: UNK UNK, QD
  4. VEDOLIZUMAB [Suspect]
     Active Substance: VEDOLIZUMAB
     Indication: CROHN^S DISEASE
     Dosage: 300 MG, Q4WEEKS
     Route: 042
     Dates: start: 20160623
  5. COVERSYL PLUS [Concomitant]
     Active Substance: INDAPAMIDE\PERINDOPRIL
     Dosage: 8 MG/2.5 MG, QD

REACTIONS (21)
  - Abdominal pain [Recovered/Resolved]
  - Intestinal stenosis [Unknown]
  - Nasal congestion [Not Recovered/Not Resolved]
  - Abdominal pain lower [Recovered/Resolved]
  - Inguinal hernia [Not Recovered/Not Resolved]
  - Flank pain [Recovered/Resolved]
  - Cough [Not Recovered/Not Resolved]
  - Vomiting [Recovered/Resolved]
  - Post procedural haematoma [Unknown]
  - Blood pressure increased [Not Recovered/Not Resolved]
  - Testicular microlithiasis [Unknown]
  - Nausea [Recovered/Resolved]
  - Scar [Not Recovered/Not Resolved]
  - Crohn^s disease [Not Recovered/Not Resolved]
  - Procedural pain [Unknown]
  - Pharyngitis streptococcal [Recovered/Resolved]
  - Stress [Unknown]
  - Cholelithiasis [Unknown]
  - Pain [Not Recovered/Not Resolved]
  - Nephrolithiasis [Not Recovered/Not Resolved]
  - Off label use [Unknown]

NARRATIVE: CASE EVENT DATE: 20160623
